FAERS Safety Report 17349139 (Version 8)
Quarter: 2022Q3

REPORT INFORMATION
  Report Type: Report from Study
  Country: US (occurrence: US)
  Receive Date: 20200130
  Receipt Date: 20220919
  Transmission Date: 20221026
  Serious: Yes (Hospitalization)
  Sender: FDA-Public Use
  Company Number: NVSC2020US011563

PATIENT
  Age: 33 Year
  Sex: Female
  Weight: 58.5 kg

DRUGS (10)
  1. KISQALI [Suspect]
     Active Substance: RIBOCICLIB
     Indication: Breast cancer
     Dosage: 200 MG, QD
     Route: 048
     Dates: start: 20190731
  2. FEMARA [Suspect]
     Active Substance: LETROZOLE
     Indication: Breast cancer
     Dosage: 2.5 MG, QD
     Route: 048
     Dates: start: 20190731
  3. GOSERELIN [Suspect]
     Active Substance: GOSERELIN
     Indication: Breast cancer
     Dosage: 3.6 MG
     Route: 058
     Dates: start: 20190731
  4. GOSERELIN [Suspect]
     Active Substance: GOSERELIN
     Dosage: 3.6 MG
     Route: 058
     Dates: start: 20190827
  5. GOSERELIN [Suspect]
     Active Substance: GOSERELIN
     Dosage: 3.6 MG
     Route: 058
     Dates: start: 20190924
  6. GOSERELIN [Suspect]
     Active Substance: GOSERELIN
     Dosage: 3.6 MG
     Route: 058
     Dates: start: 20191022
  7. GOSERELIN [Suspect]
     Active Substance: GOSERELIN
     Dosage: 3.6 MG
     Route: 058
     Dates: start: 20191115
  8. GOSERELIN [Suspect]
     Active Substance: GOSERELIN
     Dosage: 3.6 MG
     Route: 058
     Dates: start: 20191217
  9. GOSERELIN [Suspect]
     Active Substance: GOSERELIN
     Dosage: 3.6 MG
     Route: 058
     Dates: start: 20200116
  10. GOSERELIN [Suspect]
     Active Substance: GOSERELIN
     Dosage: 3.6 MG
     Route: 058
     Dates: start: 20200214

REACTIONS (1)
  - Breast injury [Recovered/Resolved]

NARRATIVE: CASE EVENT DATE: 20200106
